FAERS Safety Report 6626833-9 (Version None)
Quarter: 2010Q1

REPORT INFORMATION
  Report Type: 
  Country: None (occurrence: None)
  Receive Date: 20100308
  Receipt Date: 20100226
  Transmission Date: 20100710
  Serious: Yes (Hospitalization)
  Sender: FDA-Public Use
  Company Number: 2010SP012520

PATIENT
  Age: 56 Year
  Sex: Male

DRUGS (8)
  1. PEG-INTRON [Suspect]
     Indication: DRUG USE FOR UNKNOWN INDICATION
     Dosage: 180.0 MG; QW; SC, 135.0 MG; QW; SC
     Route: 058
  2. RIBAVIRIN [Suspect]
     Indication: DRUG USE FOR UNKNOWN INDICATION
     Dosage: 400 MG; BID; PO
     Route: 048
  3. RAPAMUNE [Suspect]
     Indication: DRUG USE FOR UNKNOWN INDICATION
     Dosage: 2.0 MG; ; PO
     Route: 048
  4. TACROLIMUS [Suspect]
     Indication: DRUG USE FOR UNKNOWN INDICATION
  5. ALDACTONE [Concomitant]
  6. FUROSEMIDE [Concomitant]
  7. PANTOPRAZOLE [Concomitant]
  8. VANCOMYCIN HYDROCHLORIDE [Concomitant]

REACTIONS (3)
  - ANAEMIA [None]
  - MELAENA [None]
  - THROMBOCYTOPENIA [None]
